FAERS Safety Report 6677594-9 (Version None)
Quarter: 2010Q2

REPORT INFORMATION
  Report Type: 
  Country: None (occurrence: None)
  Receive Date: 20100412
  Receipt Date: 20100406
  Transmission Date: 20101027
  Serious: Yes (Other)
  Sender: FDA-Public Use
  Company Number: JP-ELI_LILLY_AND_COMPANY-JP201004001417

PATIENT
  Age: 62 Year
  Sex: Male

DRUGS (3)
  1. GEMZAR [Suspect]
     Indication: PANCREATIC CARCINOMA
     Route: 042
  2. GEMZAR [Suspect]
     Route: 042
     Dates: start: 20100301
  3. ELPLAT [Concomitant]
     Indication: PANCREATIC CARCINOMA
     Route: 042
     Dates: start: 20100301

REACTIONS (1)
  - CHOLANGITIS SCLEROSING [None]
